FAERS Safety Report 19580162 (Version 1)
Quarter: 2021Q3

REPORT INFORMATION
  Report Type: Spontaneous
  Country: JP (occurrence: JP)
  Receive Date: 20210720
  Receipt Date: 20210720
  Transmission Date: 20211014
  Serious: Yes (Hospitalization, Other)
  Sender: FDA-Public Use
  Company Number: JP-ADVANZ PHARMA-202107005129

PATIENT

DRUGS (1)
  1. ZONISAMIDE. [Suspect]
     Active Substance: ZONISAMIDE
     Indication: EPILEPSY
     Dosage: DOSE AND FREQUENCY UNKNOWN (EXCEGRAN), TABLET
     Route: 048

REACTIONS (2)
  - Cholangitis [Recovering/Resolving]
  - Bile duct cancer [Unknown]
